FAERS Safety Report 24613479 (Version 1)
Quarter: 2024Q4

REPORT INFORMATION
  Report Type: Spontaneous
  Country: IT (occurrence: IT)
  Receive Date: 20241113
  Receipt Date: 20241113
  Transmission Date: 20250114
  Serious: Yes (Other)
  Sender: SANOFI AVENTIS
  Company Number: None

PATIENT
  Age: 70 Year
  Sex: Male

DRUGS (8)
  1. OXALIPLATIN [Suspect]
     Active Substance: OXALIPLATIN
     Indication: Intestinal adenocarcinoma
     Dosage: 119.94 MG, QOW
     Route: 042
     Dates: start: 20240807, end: 20240807
  2. OXALIPLATIN [Suspect]
     Active Substance: OXALIPLATIN
     Dosage: 105.83 MG, QOW
     Route: 042
     Dates: start: 20240821, end: 20240821
  3. FLUOROURACIL [Suspect]
     Active Substance: FLUOROURACIL
     Indication: Intestinal adenocarcinoma
     Dosage: 564.4 MG, QOW
     Route: 042
     Dates: start: 20240807, end: 20240807
  4. FLUOROURACIL [Suspect]
     Active Substance: FLUOROURACIL
     Dosage: 3386.4 MG, QOW
     Route: 042
     Dates: start: 20240807, end: 20240807
  5. FLUOROURACIL [Suspect]
     Active Substance: FLUOROURACIL
     Dosage: 498 MG, QOW
     Route: 042
     Dates: start: 20240821, end: 20240821
  6. FLUOROURACIL [Suspect]
     Active Substance: FLUOROURACIL
     Dosage: 2988 MG, QOW
     Route: 042
     Dates: start: 20240821, end: 20240821
  7. LEUCOVORIN CALCIUM [Concomitant]
     Active Substance: LEUCOVORIN CALCIUM
     Dosage: 282.2 MG
  8. LEUCOVORIN CALCIUM [Concomitant]
     Active Substance: LEUCOVORIN CALCIUM
     Dosage: 332 MG

REACTIONS (5)
  - Azotaemia [Unknown]
  - Blood creatinine increased [Unknown]
  - Blood lactate dehydrogenase increased [Unknown]
  - Stomatitis [Not Recovered/Not Resolved]
  - Anaemia [Recovering/Resolving]

NARRATIVE: CASE EVENT DATE: 20240810
